FAERS Safety Report 8582615-2 (Version None)
Quarter: 2012Q3

REPORT INFORMATION
  Report Type: 
  Country: None (occurrence: None)
  Receive Date: 20120809
  Receipt Date: 20120112
  Transmission Date: 20120928
  Serious: Yes (Other)
  Sender: FDA-Public Use
  Company Number: US-ROCHE-1097728

PATIENT
  Age: 64 Year
  Sex: Male

DRUGS (4)
  1. ACTIVASE [Suspect]
     Indication: ANGINA UNSTABLE
  2. NITROGLYCERIN [Concomitant]
  3. HEPARIN [Concomitant]
  4. ACTIVASE [Suspect]
     Indication: MYOCARDIAL INFARCTION

REACTIONS (5)
  - MYOCARDIAL INFARCTION [None]
  - ARTERIOSCLEROSIS [None]
  - CHEST PAIN [None]
  - ANGIOPATHY [None]
  - ATRIAL FIBRILLATION [None]
